FAERS Safety Report 6133343-4 (Version None)
Quarter: 2009Q1

REPORT INFORMATION
  Report Type: 
  Country: None (occurrence: None)
  Receive Date: 20090325
  Receipt Date: 20090325
  Transmission Date: 20090719
  Serious: Yes (Life-Threatening)
  Sender: FDA-Public Use
  Company Number: None

PATIENT
  Age: 86 Year
  Sex: Female
  Weight: 82 kg

DRUGS (2)
  1. PREGABALIN 75 MG PFIZER [Suspect]
     Indication: MUSCLE SPASMS
     Dosage: 75 MG BID PO
     Route: 048
     Dates: start: 20090307, end: 20090309
  2. PREGABALIN 75 MG PFIZER [Suspect]
     Indication: NEUROPATHY PERIPHERAL
     Dosage: 75 MG BID PO
     Route: 048
     Dates: start: 20090307, end: 20090309

REACTIONS (13)
  - ANAEMIA [None]
  - BRADYCARDIA [None]
  - BRADYPNOEA [None]
  - ENCEPHALOPATHY [None]
  - HYPOAESTHESIA [None]
  - HYPONATRAEMIA [None]
  - HYPOTENSION [None]
  - HYPOTHERMIA [None]
  - LEUKOPENIA [None]
  - MENTAL STATUS CHANGES [None]
  - NEUTROPENIA [None]
  - PERIPHERAL COLDNESS [None]
  - THROMBOCYTOPENIA [None]
